FAERS Safety Report 7962722-5 (Version None)
Quarter: 2011Q4

REPORT INFORMATION
  Report Type: 
  Country: None (occurrence: None)
  Receive Date: 20111207
  Receipt Date: 20111129
  Transmission Date: 20120403
  Serious: Yes (Other)
  Sender: FDA-Public Use
  Company Number: BR-ASTRAZENECA-2011SE35843

PATIENT
  Age: 60 Year
  Sex: Female
  Weight: 63 kg

DRUGS (7)
  1. ATACAND [Suspect]
     Indication: HYPERTENSION
     Route: 048
     Dates: start: 20090101, end: 20110601
  2. GLIMEPIRIDE [Suspect]
     Indication: DIABETES MELLITUS
     Route: 048
     Dates: start: 20100101, end: 20110501
  3. PANTOPRAZOLE [Concomitant]
     Indication: OESOPHAGITIS
     Dosage: AS REQUIRED
     Route: 048
     Dates: start: 20000101
  4. METFORMIN HCL [Concomitant]
     Indication: DIABETES MELLITUS
     Route: 048
  5. GALVUS MET [Suspect]
     Indication: DIABETES MELLITUS
     Route: 048
     Dates: start: 20110501
  6. PANTOPRAZOLE [Concomitant]
     Indication: ABDOMINAL PAIN UPPER
     Dosage: AS REQUIRED
     Route: 048
     Dates: start: 20000101
  7. SIMVASTATIN [Concomitant]
     Route: 048
     Dates: start: 20060101

REACTIONS (7)
  - BLOOD PRESSURE INADEQUATELY CONTROLLED [None]
  - DRUG INEFFECTIVE [None]
  - ABDOMINAL PAIN UPPER [None]
  - DIABETES MELLITUS INADEQUATE CONTROL [None]
  - HEADACHE [None]
  - COUGH [None]
  - FLATULENCE [None]
